FAERS Safety Report 8845455 (Version 1)
Quarter: 2012Q4

REPORT INFORMATION
  Report Type: 
  Country: CO (occurrence: CO)
  Receive Date: 20121017
  Receipt Date: 20121017
  Transmission Date: 20130627
  Serious: Yes (Death)
  Sender: FDA-Public Use
  Company Number: PHHY2012CO092258

PATIENT
  Age: 52 Year
  Sex: Male

DRUGS (1)
  1. TASIGNA [Suspect]
     Indication: CHRONIC MYELOID LEUKAEMIA
     Dosage: 2 DF, daily
     Route: 048

REACTIONS (3)
  - Respiratory arrest [Fatal]
  - Choking sensation [Fatal]
  - Pulmonary haemorrhage [Fatal]
